FAERS Safety Report 7761723-X (Version None)
Quarter: 2011Q3

REPORT INFORMATION
  Report Type: 
  Country: None (occurrence: None)
  Receive Date: 20110920
  Receipt Date: 20110912
  Transmission Date: 20111222
  Serious: Yes (Hospitalization)
  Sender: FDA-Public Use
  Company Number: PHHO2011US15553

PATIENT
  Sex: Female
  Weight: 45.8 kg

DRUGS (1)
  1. AFINITOR [Suspect]
     Indication: GLIOMA
     Dosage: 10 MG, DAILY
     Route: 048
     Dates: start: 20110125, end: 20110905

REACTIONS (1)
  - ANGINA PECTORIS [None]
